FAERS Safety Report 4586664-0 (Version None)
Quarter: 2005Q1

REPORT INFORMATION
  Report Type: 
  Country: None (occurrence: None)
  Receive Date: 20050218
  Receipt Date: 20041021
  Transmission Date: 20050727
  Serious: Yes (Other)
  Sender: FDA-Public Use
  Company Number: US-BRISTOL-MYERS SQUIBB COMPANY-12740833

PATIENT
  Sex: Female

DRUGS (1)
  1. TAXOL [Suspect]
     Indication: OVARIAN CANCER
     Route: 042

REACTIONS (1)
  - HYPERSENSITIVITY [None]
